FAERS Safety Report 19387419 (Version 3)
Quarter: 2021Q2

REPORT INFORMATION
  Report Type: Report from Study
  Country: IT (occurrence: IT)
  Receive Date: 20210608
  Receipt Date: 20210628
  Transmission Date: 20210717
  Serious: Yes (Other)
  Sender: FDA-Public Use
  Company Number: IT-TEVA-2021-IT-1919463

PATIENT
  Age: 83 Year
  Sex: Male

DRUGS (7)
  1. ACETYLSALICYLIC ACID [Concomitant]
     Active Substance: ASPIRIN
     Dosage: 100MILLIGRAM
  2. RANEXA [Concomitant]
     Active Substance: RANOLAZINE
  3. BRILIQUE [Concomitant]
     Active Substance: TICAGRELOR
  4. BISOPROLOL FUMARATE. [Suspect]
     Active Substance: BISOPROLOL FUMARATE
     Indication: CARDIAC DISORDER
     Dosage: 1.25MILLIGRAM
     Route: 065
     Dates: start: 20210501, end: 20210509
  5. TORVAST [Concomitant]
     Active Substance: ATORVASTATIN
  6. IVABRADINE [Suspect]
     Active Substance: IVABRADINE
     Indication: CARDIAC DISORDER
     Route: 065
     Dates: start: 20210101, end: 20210509
  7. PANTOPRAZOLE [Concomitant]
     Active Substance: PANTOPRAZOLE

REACTIONS (1)
  - Sinus bradycardia [Recovering/Resolving]

NARRATIVE: CASE EVENT DATE: 20210508
